FAERS Safety Report 13372641 (Version 5)
Quarter: 2017Q2

REPORT INFORMATION
  Report Type: Spontaneous
  Country: JP (occurrence: JP)
  Receive Date: 20170327
  Receipt Date: 20170522
  Transmission Date: 20170830
  Serious: Yes (Hospitalization, Other)
  Sender: FDA-Public Use
  Company Number: JP-009507513-1703JPN001935J

PATIENT
  Age: 69 Year
  Sex: Male
  Weight: 64 kg

DRUGS (5)
  1. CEFAZOLIN SODIUM. [Concomitant]
     Active Substance: CEFAZOLIN SODIUM
     Indication: STAPHYLOCOCCAL BACTERAEMIA
     Dosage: 1 G, TID
     Route: 042
     Dates: start: 20170118, end: 20170130
  2. CLINDAMYCIN. [Concomitant]
     Active Substance: CLINDAMYCIN
     Indication: STAPHYLOCOCCAL BACTERAEMIA
     Dosage: 600 MG, BID
     Route: 042
     Dates: start: 20170118, end: 20170126
  3. LANSOPRAZOLE OD [Concomitant]
     Active Substance: LANSOPRAZOLE
     Indication: PROPHYLAXIS AGAINST GASTROINTESTINAL ULCER
     Dosage: 30 MG, QD
     Route: 048
     Dates: start: 20170119, end: 20170304
  4. RAPIACTA [Concomitant]
     Active Substance: PERAMIVIR
     Indication: INFLUENZA
     Dosage: 200 MG, QD
     Route: 042
     Dates: start: 20170124, end: 20170126
  5. CUBICIN [Suspect]
     Active Substance: DAPTOMYCIN
     Indication: STAPHYLOCOCCAL BACTERAEMIA
     Dosage: 420 MG, QD
     Route: 041
     Dates: start: 20170130, end: 20170213

REACTIONS (1)
  - Interstitial lung disease [Recovered/Resolved]

NARRATIVE: CASE EVENT DATE: 20170209
